FAERS Safety Report 5464814-1 (Version None)
Quarter: 2007Q3

REPORT INFORMATION
  Report Type: 
  Country: None (occurrence: None)
  Receive Date: 20070921
  Receipt Date: 20070911
  Transmission Date: 20080115
  Serious: Yes (Other)
  Sender: FDA-Public Use
  Company Number: US-PFIZER INC-2007075895

PATIENT
  Sex: Female
  Weight: 47.727 kg

DRUGS (2)
  1. ZOLOFT [Suspect]
     Indication: ANXIETY
     Dosage: FREQ:DAILY
     Dates: start: 20070801, end: 20070908
  2. VITAMINS [Concomitant]

REACTIONS (4)
  - CHEST DISCOMFORT [None]
  - RASH [None]
  - THROAT TIGHTNESS [None]
  - URTICARIA [None]
